FAERS Safety Report 9567341 (Version 2)
Quarter: 2013Q3

REPORT INFORMATION
  Report Type: Spontaneous
  Country: US (occurrence: US)
  Receive Date: 20130930
  Receipt Date: 20130930
  Transmission Date: 20140515
  Serious: No
  Sender: FDA-Public Use
  Company Number: US-AMGEN-USASP2012062907

PATIENT
  Age: 29 Year
  Sex: Female
  Weight: 126.98 kg

DRUGS (7)
  1. ENBREL [Suspect]
     Indication: PSORIASIS
     Dosage: 50 MG, 2 TIMES/WK
     Route: 058
     Dates: start: 2005, end: 20120816
  2. ENBREL [Suspect]
     Indication: PSORIATIC ARTHROPATHY
  3. CATAFLAM                           /00372302/ [Concomitant]
     Indication: ARTHRITIS
     Dosage: UNK UNK, PRN
     Route: 048
     Dates: start: 2010
  4. SOMA [Concomitant]
     Indication: ARTHRITIS
     Dosage: UNK UNK, PRN
     Route: 048
     Dates: start: 2010
  5. PROPRANOLOL [Concomitant]
     Dosage: 5 MG, QD
     Route: 048
     Dates: start: 2010
  6. DEPO PROVERA [Concomitant]
     Indication: CONTRACEPTION
     Route: 030
  7. DEPO PROVERA [Concomitant]
     Indication: POLYCYSTIC OVARIES

REACTIONS (2)
  - Arthritis [Not Recovered/Not Resolved]
  - Psoriasis [Not Recovered/Not Resolved]
